FAERS Safety Report 21946057 (Version 2)
Quarter: 2023Q2

REPORT INFORMATION
  Report Type: Spontaneous
  Country: US (occurrence: US)
  Receive Date: 20230202
  Receipt Date: 20230530
  Transmission Date: 20230721
  Serious: No
  Sender: FDA-Public Use
  Company Number: US-INCYTE CORPORATION-2022IN002105

PATIENT

DRUGS (1)
  1. OPZELURA [Suspect]
     Active Substance: RUXOLITINIB PHOSPHATE
     Indication: Skin disorder
     Dosage: BID
     Route: 061

REACTIONS (3)
  - Skin irritation [Unknown]
  - Pain of skin [Unknown]
  - Product physical issue [Unknown]
